FAERS Safety Report 8123516-3 (Version None)
Quarter: 2012Q1

REPORT INFORMATION
  Report Type: 
  Country: None (occurrence: None)
  Receive Date: 20120208
  Receipt Date: 20120131
  Transmission Date: 20120608
  Serious: Yes (Hospitalization, Other)
  Sender: FDA-Public Use
  Company Number: PHHY2012US009829

PATIENT
  Age: 21 Year
  Sex: Female

DRUGS (6)
  1. TOBRAMYCIN [Concomitant]
     Route: 042
  2. SPIRONOLACTONE [Concomitant]
     Dosage: 200 MG, BID
  3. RIFAMPIN [Concomitant]
  4. POLYMYXIN [Concomitant]
  5. AMILORIDE HYDROCHLORIDE [Concomitant]
     Dosage: 10 MG, QD
  6. TOBI [Suspect]

REACTIONS (12)
  - HYPERCALCIURIA [None]
  - HYPERMAGNESURIA [None]
  - HYPERGLYCAEMIA [None]
  - RESPIRATORY ACIDOSIS [None]
  - BARTTER'S SYNDROME [None]
  - HYPERCHLORURIA [None]
  - HYPOKALAEMIA [None]
  - HYPOMAGNESAEMIA [None]
  - HYPOCALCAEMIA [None]
  - ELECTROLYTE IMBALANCE [None]
  - BLOOD GLUCOSE ABNORMAL [None]
  - METABOLIC ALKALOSIS [None]
